FAERS Safety Report 5981278-X (Version None)
Quarter: 2008Q4

REPORT INFORMATION
  Report Type: 
  Country: None (occurrence: None)
  Receive Date: 20081202
  Receipt Date: 20081110
  Transmission Date: 20090506
  Serious: Yes (Hospitalization)
  Sender: FDA-Public Use
  Company Number: DSA_32674_2008

PATIENT
  Sex: Male

DRUGS (8)
  1. TAVOR / 00273201 / (TAVOR - LORAZEPAM) 2 MG  (NOT SPECIFIED) [Suspect]
     Indication: DRUG USE FOR UNKNOWN INDICATION
     Dosage: 1.5 MG QD ORAL, 2 MG QD, ORAL, 2.5 MG QD ORAL
     Route: 048
     Dates: start: 20080301, end: 20080624
  2. TAVOR / 00273201 / (TAVOR - LORAZEPAM) 2 MG  (NOT SPECIFIED) [Suspect]
     Indication: DRUG USE FOR UNKNOWN INDICATION
     Dosage: 1.5 MG QD ORAL, 2 MG QD, ORAL, 2.5 MG QD ORAL
     Route: 048
     Dates: start: 20080625, end: 20080630
  3. TAVOR / 00273201 / (TAVOR - LORAZEPAM) 2 MG  (NOT SPECIFIED) [Suspect]
     Indication: DRUG USE FOR UNKNOWN INDICATION
     Dosage: 1.5 MG QD ORAL, 2 MG QD, ORAL, 2.5 MG QD ORAL
     Route: 048
     Dates: start: 20080701, end: 20080704
  4. TAVOR / 00273201 / (TAVOR - LORAZEPAM) 2 MG  (NOT SPECIFIED) [Suspect]
     Indication: DRUG USE FOR UNKNOWN INDICATION
     Dosage: 1.5 MG QD ORAL, 2 MG QD, ORAL, 2.5 MG QD ORAL
     Route: 048
     Dates: start: 20080705, end: 20080721
  5. DOMINAL /00018902/ (DOMINAL PROTHIPENDYL HYDROCHLORIDE) (NOT SPECIFIED [Suspect]
     Indication: DRUG USE FOR UNKNOWN INDICATION
     Dosage: 40 MG QD ORAL
     Route: 048
     Dates: start: 20080711
  6. TREVILOR (TREVILOR RETARD - VENLAFAXINE HYDROCHLORIDE) (NOT SPECIFIED) [Suspect]
     Indication: DEPRESSION
     Dosage: 150 MG QD ORAL, 75 MG, QD ORAL
     Route: 048
     Dates: start: 20080625, end: 20080630
  7. TREVILOR (TREVILOR RETARD - VENLAFAXINE HYDROCHLORIDE) (NOT SPECIFIED) [Suspect]
     Indication: DEPRESSION
     Dosage: 150 MG QD ORAL, 75 MG, QD ORAL
     Route: 048
     Dates: start: 20080701
  8. ACETYLSALICYLIC ACID [Concomitant]

REACTIONS (8)
  - CONCUSSION [None]
  - DIZZINESS [None]
  - DRUG DEPENDENCE [None]
  - DRUG INTERACTION [None]
  - FACIAL BONES FRACTURE [None]
  - FALL [None]
  - LOSS OF CONSCIOUSNESS [None]
  - SYNCOPE [None]
